FAERS Safety Report 5509609-5 (Version None)
Quarter: 2007Q4

REPORT INFORMATION
  Report Type: 
  Country: None (occurrence: None)
  Receive Date: 20071106
  Receipt Date: 20071106
  Transmission Date: 20080405
  Serious: Yes (Other)
  Sender: FDA-Public Use
  Company Number: None

PATIENT
  Sex: Male
  Weight: 86.1834 kg

DRUGS (1)
  1. PHENOBARBITAL TAB [Suspect]
     Indication: EPILEPSY
     Dosage: I TABLET TWICE DAY PO
     Route: 048
     Dates: start: 20071031

REACTIONS (1)
  - TREMOR [None]
